FAERS Safety Report 6568946-6 (Version None)
Quarter: 2010Q1

REPORT INFORMATION
  Report Type: 
  Country: None (occurrence: None)
  Receive Date: 20100203
  Receipt Date: 20100122
  Transmission Date: 20100710
  Serious: Yes (Other)
  Sender: FDA-Public Use
  Company Number: US-JNJCH-2010002982

PATIENT
  Age: 55 Year
  Sex: Male
  Weight: 74.8 kg

DRUGS (1)
  1. BENADRYL [Suspect]
     Indication: LYMPHADENOPATHY
     Route: 048
     Dates: start: 20100108, end: 20100111

REACTIONS (2)
  - DEPRESSION [None]
  - OFF LABEL USE [None]
